FAERS Safety Report 5805642-4 (Version None)
Quarter: 2008Q3

REPORT INFORMATION
  Report Type: 
  Country: None (occurrence: None)
  Receive Date: 20080710
  Receipt Date: 20080327
  Transmission Date: 20090109
  Serious: No
  Sender: FDA-Public Use
  Company Number: A0717862A

PATIENT
  Age: 48 Year
  Sex: Female

DRUGS (5)
  1. TYKERB [Suspect]
     Indication: BREAST CANCER
     Dosage: 250MG FIVE TIMES PER DAY
     Route: 048
     Dates: start: 20080111, end: 20080126
  2. XELODA [Concomitant]
  3. PROZAC [Concomitant]
  4. PAMELOR [Concomitant]
  5. PROLIXIN [Concomitant]

REACTIONS (2)
  - DIARRHOEA [None]
  - RASH [None]
